FAERS Safety Report 11387208 (Version 1)
Quarter: 2015Q3

REPORT INFORMATION
  Report Type: Spontaneous
  Country: FR (occurrence: FR)
  Receive Date: 20150817
  Receipt Date: 20150817
  Transmission Date: 20151125
  Serious: Yes (Hospitalization, Other)
  Sender: FDA-Public Use
  Company Number: FR-HOSPIRA-2972093

PATIENT
  Age: 3 Year
  Sex: Female

DRUGS (8)
  1. MESNA. [Concomitant]
     Active Substance: MESNA
     Indication: PRODUCT USED FOR UNKNOWN INDICATION
  2. VINCRISTINE HOSPIRA [Suspect]
     Active Substance: VINCRISTINE
     Indication: MALIGNANT NEOPLASM OF THORAX
     Dosage: 1 CYCLE
     Dates: start: 20140922, end: 20150414
  3. IFOSFAMIDE. [Suspect]
     Active Substance: IFOSFAMIDE
     Indication: MALIGNANT NEOPLASM OF THORAX
     Dosage: INJECTED BY SLOW IV OVER 3H AT D1
     Route: 042
     Dates: start: 20150114, end: 20150115
  4. ZOPHREN                            /00955301/ [Concomitant]
     Active Substance: ONDANSETRON
     Indication: PRODUCT USED FOR UNKNOWN INDICATION
  5. IFOSFAMIDE. [Suspect]
     Active Substance: IFOSFAMIDE
     Indication: MALIGNANT NEOPLASM OF THORAX
     Route: 042
     Dates: start: 20140922
  6. DOXORUBICINE ACCORD [Suspect]
     Active Substance: DOXORUBICIN
     Indication: MALIGNANT NEOPLASM OF THORAX
     Dosage: 1 CYCLE
     Dates: start: 20140922, end: 20141128
  7. COSMEGEN [Suspect]
     Active Substance: DACTINOMYCIN
     Indication: MALIGNANT NEOPLASM OF THORAX
     Dosage: 1 CYCLE
     Dates: start: 20140922, end: 20150414
  8. PLITICAN [Concomitant]
     Active Substance: ALIZAPRIDE HYDROCHLORIDE
     Indication: PRODUCT USED FOR UNKNOWN INDICATION

REACTIONS (1)
  - Encephalopathy [Recovered/Resolved]

NARRATIVE: CASE EVENT DATE: 20141016
